FAERS Safety Report 9435211 (Version 5)
Quarter: 2016Q1

REPORT INFORMATION
  Report Type: Spontaneous
  Country: CA (occurrence: CA)
  Receive Date: 20130801
  Receipt Date: 20160203
  Transmission Date: 20160526
  Serious: Yes (Other)
  Sender: FDA-Public Use
  Company Number: CA-009507513-1306CAN014443

PATIENT
  Age: 54 Year
  Sex: Male

DRUGS (4)
  1. RIBAVIRIN. [Suspect]
     Active Substance: RIBAVIRIN
     Indication: PRODUCT USED FOR UNKNOWN INDICATION
     Dosage: 1200MG, QD
     Route: 065
     Dates: start: 20130416, end: 2013
  2. VICTRELIS [Suspect]
     Active Substance: BOCEPREVIR
     Indication: PRODUCT USED FOR UNKNOWN INDICATION
     Dosage: UNK
     Route: 065
  3. APO-NADOL [Concomitant]
     Active Substance: NADOLOL
     Indication: OROPHARYNGEAL DISCOMFORT
     Route: 048
  4. PEGASYS [Suspect]
     Active Substance: PEGINTERFERON ALFA-2A
     Indication: PRODUCT USED FOR UNKNOWN INDICATION
     Dosage: 180 MICROGRAM, UNK
     Route: 058
     Dates: start: 20130416, end: 2013

REACTIONS (14)
  - Acne [Unknown]
  - Pharyngeal ulceration [Unknown]
  - Oropharyngeal pain [Unknown]
  - Oral pain [Unknown]
  - Eye pain [Unknown]
  - Pharyngeal disorder [Unknown]
  - Rhinitis [Unknown]
  - Infection [Unknown]
  - Pain of skin [Unknown]
  - Rash [Unknown]
  - Blood test abnormal [Unknown]
  - Oropharyngeal discomfort [Unknown]
  - Rhinalgia [Unknown]
  - Stomatitis [Unknown]

NARRATIVE: CASE EVENT DATE: 20130719
